FAERS Safety Report 10427843 (Version 1)
Quarter: 2014Q3

REPORT INFORMATION
  Report Type: Spontaneous
  Country: US (occurrence: None)
  Receive Date: 20140902
  Receipt Date: 20140902
  Transmission Date: 20150326
  Serious: Yes (Disabling)
  Sender: FDA-Public Use
  Company Number: None

PATIENT
  Age: 63 Year
  Sex: Female
  Weight: 63.05 kg

DRUGS (1)
  1. BONIVA [Suspect]
     Active Substance: IBANDRONATE SODIUM
     Indication: OSTEOPENIA
     Dosage: 1 MONTHLY PILL MONTHLY TAKEN BY MOUTH
     Route: 048

REACTIONS (7)
  - Pain in extremity [None]
  - Myalgia [None]
  - Muscle rupture [None]
  - Soft tissue injury [None]
  - Muscle strain [None]
  - Alopecia [None]
  - Influenza like illness [None]

NARRATIVE: CASE EVENT DATE: 20120803
